FAERS Safety Report 17686309 (Version 1)
Quarter: 2020Q2

REPORT INFORMATION
  Report Type: Spontaneous
  Country: GB (occurrence: GB)
  Receive Date: 20200420
  Receipt Date: 20200420
  Transmission Date: 20200714
  Serious: Yes (Hospitalization)
  Sender: FDA-Public Use
  Company Number: GB-DEXPHARM-20200283

PATIENT
  Age: 81 Year
  Sex: Female

DRUGS (8)
  1. CALCIUM CARBONATE. [Concomitant]
     Active Substance: CALCIUM CARBONATE
     Route: 048
  2. MACROBID [Concomitant]
     Active Substance: NITROFURANTOIN\NITROFURANTOIN MONOHYDRATE
     Dosage: FOR 5 DAYS
     Route: 048
  3. PREDNISOLONE. [Concomitant]
     Active Substance: PREDNISOLONE
     Dosage: MORNING
     Route: 048
  4. COLECALCIFEROL [Concomitant]
     Active Substance: CHOLECALCIFEROL
     Dosage: 200UNIT
     Route: 048
  5. ATENOLOL. [Concomitant]
     Active Substance: ATENOLOL
     Dosage: MORNING
     Route: 048
  6. OMEPRAZOLE. [Suspect]
     Active Substance: OMEPRAZOLE
     Dosage: MORNING
     Route: 048
  7. CANDESARTAN. [Suspect]
     Active Substance: CANDESARTAN
     Dosage: MORNING
     Route: 048
  8. RISEDRONATE SODIUM. [Concomitant]
     Active Substance: RISEDRONATE SODIUM
     Route: 048

REACTIONS (1)
  - Confusional state [Unknown]
